FAERS Safety Report 9552897 (Version 1)
Quarter: 2013Q3

REPORT INFORMATION
  Report Type: Spontaneous
  Country: US (occurrence: None)
  Receive Date: 20130924
  Receipt Date: 20130924
  Transmission Date: 20140515
  Serious: Yes (Life-Threatening, Hospitalization)
  Sender: FDA-Public Use
  Company Number: None

PATIENT
  Age: 86 Year
  Sex: Female
  Weight: 80.2 kg

DRUGS (9)
  1. XARELTO [Suspect]
     Indication: THROMBOSIS PROPHYLAXIS
     Route: 048
     Dates: start: 20130621, end: 20130915
  2. LIPITOR [Concomitant]
  3. SYNTHROID [Concomitant]
  4. METOPROLOL [Concomitant]
  5. LASIX [Concomitant]
  6. COZAAR [Concomitant]
  7. LUMAGAN OPTH DROPS [Concomitant]
  8. PREDFORTE OPTH DROPS [Concomitant]
  9. ALPHAGAN [Concomitant]

REACTIONS (2)
  - Dysphagia [None]
  - Haematoma [None]
